FAERS Safety Report 12777964 (Version 1)
Quarter: 2016Q3

REPORT INFORMATION
  Report Type: Spontaneous
  Country: US (occurrence: US)
  Receive Date: 20160924
  Receipt Date: 20160924
  Transmission Date: 20161109
  Serious: No
  Sender: FDA-Public Use
  Company Number: US-JAZZ-2016-US-010840

PATIENT
  Sex: Female

DRUGS (16)
  1. XYREM [Suspect]
     Active Substance: SODIUM OXYBATE
     Indication: CATAPLEXY
     Dosage: DOSE ADJUSTMENTS
     Route: 048
     Dates: start: 201112, end: 201112
  2. POTASSIUM CL [Concomitant]
     Active Substance: POTASSIUM CHLORIDE
  3. TIZANIDINE HCL [Concomitant]
     Active Substance: TIZANIDINE HYDROCHLORIDE
  4. ATENOLOL. [Concomitant]
     Active Substance: ATENOLOL
  5. QVAR [Concomitant]
     Active Substance: BECLOMETHASONE DIPROPIONATE
  6. CARTIA XT [Concomitant]
     Active Substance: DILTIAZEM HYDROCHLORIDE
  7. KLONOPIN [Concomitant]
     Active Substance: CLONAZEPAM
  8. COMBIVENT [Concomitant]
     Active Substance: ALBUTEROL SULFATE\IPRATROPIUM BROMIDE
  9. ROBAXIN [Concomitant]
     Active Substance: METHOCARBAMOL
  10. LIDODERM [Concomitant]
     Active Substance: LIDOCAINE
  11. DULOXETINE HYDROCHLORIDE. [Concomitant]
     Active Substance: DULOXETINE HYDROCHLORIDE
  12. XYREM [Suspect]
     Active Substance: SODIUM OXYBATE
     Dosage: 4.5 G, BID
     Route: 048
     Dates: start: 201112
  13. ASMANEX [Concomitant]
     Active Substance: MOMETASONE FUROATE
  14. LOSARTAN POTASSIUM. [Concomitant]
     Active Substance: LOSARTAN POTASSIUM
  15. XYREM [Suspect]
     Active Substance: SODIUM OXYBATE
     Indication: NARCOLEPSY
     Dosage: 2.25 G, BID
     Route: 048
     Dates: start: 201112, end: 201112
  16. MIRAPEX ER [Concomitant]
     Active Substance: PRAMIPEXOLE DIHYDROCHLORIDE

REACTIONS (3)
  - Product taste abnormal [Unknown]
  - Back pain [Not Recovered/Not Resolved]
  - Drug ineffective [Unknown]
